FAERS Safety Report 5977749-2 (Version None)
Quarter: 2008Q4

REPORT INFORMATION
  Report Type: 
  Country: None (occurrence: None)
  Receive Date: 20081202
  Receipt Date: 20081202
  Transmission Date: 20090506
  Serious: Yes (Other)
  Sender: FDA-Public Use
  Company Number: None

PATIENT
  Age: 80 Year
  Sex: Male
  Weight: 12 kg

DRUGS (1)
  1. NOVOLIN R [Suspect]
     Dosage: 16 UNITS Q 6 HOURS IV DRIP
     Route: 041

REACTIONS (1)
  - DRUG ADMINISTRATION ERROR [None]
